FAERS Safety Report 4672881-8 (Version None)
Quarter: 2005Q2

REPORT INFORMATION
  Report Type: 
  Country: None (occurrence: None)
  Receive Date: 20050524
  Receipt Date: 20050518
  Transmission Date: 20051028
  Serious: Yes (Other)
  Sender: FDA-Public Use
  Company Number: 05-05-0861

PATIENT
  Age: 69 Year
  Sex: Female

DRUGS (4)
  1. TRAMADOL HCL [Suspect]
     Indication: PAIN
     Dosage: 50MG BD ORAL
     Route: 048
     Dates: start: 20050429
  2. HUMALOG MIX [Concomitant]
  3. RANITIDINE [Concomitant]
  4. ENALAPRIL MALEATE [Concomitant]

REACTIONS (1)
  - HYPOGLYCAEMIA [None]
